FAERS Safety Report 7905471-1 (Version None)
Quarter: 2011Q4

REPORT INFORMATION
  Report Type: 
  Country: None (occurrence: None)
  Receive Date: 20111110
  Receipt Date: 20111104
  Transmission Date: 20120403
  Serious: Yes (Hospitalization, Other)
  Sender: FDA-Public Use
  Company Number: US-BIOGENIDEC-2011BI020706

PATIENT
  Sex: Female

DRUGS (8)
  1. VITAMIN D [Concomitant]
  2. AVONEX [Suspect]
     Route: 030
  3. CELEXA [Concomitant]
  4. GABAPENTIN [Concomitant]
  5. AVONEX [Suspect]
     Indication: MULTIPLE SCLEROSIS
     Route: 030
     Dates: start: 20100913
  6. CLONAZEPAM [Concomitant]
  7. LUNESTA [Concomitant]
  8. SIMVASTATIN [Concomitant]

REACTIONS (9)
  - MENTAL IMPAIRMENT [None]
  - GASTROINTESTINAL NECROSIS [None]
  - FIBROMYALGIA [None]
  - GASTROINTESTINAL INJURY [None]
  - HAEMOGLOBIN DECREASED [None]
  - CONFUSIONAL STATE [None]
  - LARGE INTESTINE PERFORATION [None]
  - GASTROINTESTINAL MALFORMATION [None]
  - ARTHRITIS [None]
